FAERS Safety Report 11583260 (Version 2)
Quarter: 2015Q4

REPORT INFORMATION
  Report Type: Spontaneous
  Country: US (occurrence: US)
  Receive Date: 20151001
  Receipt Date: 20151110
  Transmission Date: 20160304
  Serious: Yes (Other)
  Sender: FDA-Public Use
  Company Number: US-AMGEN-USASP2015100255

PATIENT
  Age: 77 Year
  Sex: Male

DRUGS (1)
  1. ENBREL [Suspect]
     Active Substance: ETANERCEPT
     Indication: PSORIATIC ARTHROPATHY
     Dosage: 50 MG, WEEKLY
     Route: 065

REACTIONS (9)
  - Procedural haemorrhage [Unknown]
  - Device issue [Unknown]
  - Haematochezia [Unknown]
  - Gastric polyps [Unknown]
  - Colonoscopy [Unknown]
  - Oesophageal operation [Unknown]
  - Anaemia [Unknown]
  - Blood urine present [Unknown]
  - Injection site haemorrhage [Unknown]

NARRATIVE: CASE EVENT DATE: 20150909
